FAERS Safety Report 8757060 (Version 1)
Quarter: 2012Q4

REPORT INFORMATION
  Report Type: 
  Country: US (occurrence: US)
  Receive Date: 20120828
  Receipt Date: 20120828
  Transmission Date: 20130627
  Serious: Yes (Hospitalization)
  Sender: FDA-Public Use
  Company Number: US-PFIZER INC-2012207937

PATIENT
  Age: 82 Year
  Sex: Female
  Weight: 48.98 kg

DRUGS (5)
  1. VFEND [Suspect]
     Indication: RENAL IMPAIRMENT
     Dosage: 50 mg, 2x/day
     Route: 048
     Dates: start: 20120725
  2. FUROSEMIDE [Concomitant]
     Indication: RENAL IMPAIRMENT
     Dosage: 20 mg, 2x/day
  3. CALCIUM CARBONATE [Concomitant]
     Dosage: 500 mg, 3x/day
  4. VITAMIN C [Concomitant]
     Dosage: 500 mg, daily
  5. SIMVASTATIN [Concomitant]
     Dosage: 40 mg, daily

REACTIONS (3)
  - Dyspnoea [Unknown]
  - Oedema peripheral [Unknown]
  - Fluid retention [Unknown]
